FAERS Safety Report 8422301-2 (Version None)
Quarter: 2012Q2

REPORT INFORMATION
  Report Type: 
  Country: None (occurrence: None)
  Receive Date: 20120608
  Receipt Date: 20120606
  Transmission Date: 20120825
  Serious: Yes (Death)
  Sender: FDA-Public Use
  Company Number: JP-B.I. PHARMACEUTICALS,INC./RIDGEFIELD-2012-BP-13029NB

PATIENT
  Age: 78 Year
  Sex: Male

DRUGS (5)
  1. MAGMITT [Concomitant]
     Route: 065
  2. ALDACTONE [Concomitant]
     Route: 065
  3. PRADAXA [Suspect]
     Indication: ATRIAL FIBRILLATION
     Dosage: 220 MG
     Route: 048
     Dates: start: 20120524, end: 20120527
  4. DIGOXIN [Concomitant]
     Route: 065
  5. CANDESARTAN CILEXETIL [Concomitant]
     Route: 065

REACTIONS (3)
  - INTRA-ABDOMINAL HAEMORRHAGE [None]
  - SHOCK HAEMORRHAGIC [None]
  - TUMOUR RUPTURE [None]
